FAERS Safety Report 23618186 (Version 2)
Quarter: 2024Q1

REPORT INFORMATION
  Report Type: Spontaneous
  Country: US (occurrence: US)
  Receive Date: 20240311
  Receipt Date: 20240314
  Transmission Date: 20240410
  Serious: Yes (Other)
  Sender: FDA-Public Use
  Company Number: US-BAYER-2024A035958

PATIENT
  Age: 18 Year
  Sex: Male

DRUGS (1)
  1. KOVALTRY [Suspect]
     Active Substance: ANTIHEMOPHILIC FACTOR, HUMAN RECOMBINANT
     Indication: Haemorrhage
     Dosage: 6500 UNITS, INFUSION,(PROPHYLAXIS 1-3 TIME

REACTIONS (3)
  - Spontaneous haemorrhage [Not Recovered/Not Resolved]
  - Arthralgia [None]
  - Pain [None]

NARRATIVE: CASE EVENT DATE: 20240305
